FAERS Safety Report 11558850 (Version 1)
Quarter: 2015Q3

REPORT INFORMATION
  Report Type: Spontaneous
  Country: US (occurrence: None)
  Receive Date: 20150925
  Receipt Date: 20150925
  Transmission Date: 20151125
  Serious: No
  Sender: FDA-Public Use
  Company Number: None

PATIENT
  Age: 52 Year
  Sex: Female

DRUGS (1)
  1. HUMIRA [Suspect]
     Active Substance: ADALIMUMAB
     Indication: CROHN^S DISEASE
     Route: 058
     Dates: start: 20140707, end: 201508

REACTIONS (5)
  - Movement disorder [None]
  - Lacrimation increased [None]
  - Myalgia [None]
  - Peripheral swelling [None]
  - Oedema peripheral [None]

NARRATIVE: CASE EVENT DATE: 201508
